FAERS Safety Report 14251341 (Version 1)
Quarter: 2017Q4

REPORT INFORMATION
  Report Type: Spontaneous
  Country: US (occurrence: US)
  Receive Date: 20171205
  Receipt Date: 20171205
  Transmission Date: 20180321
  Serious: Yes (Death, Hospitalization)
  Sender: FDA-Public Use
  Company Number: US-IMPAX LABORATORIES, INC-2017-IPXL-03447

PATIENT
  Age: 53 Year
  Sex: Male

DRUGS (3)
  1. BUPIVACAINE. [Concomitant]
     Active Substance: BUPIVACAINE
     Indication: PRODUCT USED FOR UNKNOWN INDICATION
     Dosage: UNK
     Route: 065
  2. BACLOFEN. [Suspect]
     Active Substance: BACLOFEN
     Indication: PARAPLEGIA
     Dosage: UNK
     Route: 037
  3. DILAUDID [Concomitant]
     Active Substance: HYDROMORPHONE HYDROCHLORIDE
     Indication: PRODUCT USED FOR UNKNOWN INDICATION
     Dosage: UNK
     Route: 065

REACTIONS (9)
  - Metabolic encephalopathy [Unknown]
  - Accidental underdose [Unknown]
  - Brain injury [Fatal]
  - Drug withdrawal syndrome [Fatal]
  - Cardiac arrest [Recovering/Resolving]
  - Pneumonia [Unknown]
  - Device malfunction [Unknown]
  - Meningitis [Unknown]
  - Brain death [Fatal]
